FAERS Safety Report 5980618-5 (Version None)
Quarter: 2008Q4

REPORT INFORMATION
  Report Type: 
  Country: None (occurrence: None)
  Receive Date: 20081205
  Receipt Date: 20080215
  Transmission Date: 20090506
  Serious: No
  Sender: FDA-Public Use
  Company Number: A0709818A

PATIENT
  Age: 47 Year
  Sex: Female

DRUGS (1)
  1. COMMIT [Suspect]
     Dates: start: 20080214

REACTIONS (3)
  - HEART RATE INCREASED [None]
  - PALPITATIONS [None]
  - PRODUCT QUALITY ISSUE [None]
